FAERS Safety Report 8143411-3 (Version None)
Quarter: 2012Q1

REPORT INFORMATION
  Report Type: 
  Country: None (occurrence: None)
  Receive Date: 20120217
  Receipt Date: 20120210
  Transmission Date: 20120608
  Serious: Yes (Hospitalization)
  Sender: FDA-Public Use
  Company Number: JP-JNJFOC-20120206234

PATIENT
  Sex: Female
  Weight: 55 kg

DRUGS (5)
  1. CANDESARTAN CILEXETIL [Concomitant]
     Indication: ILL-DEFINED DISORDER
     Route: 048
  2. ALENDRONATE SODIUM [Concomitant]
     Indication: ILL-DEFINED DISORDER
     Route: 048
  3. FOLIC ACID [Concomitant]
     Indication: ILL-DEFINED DISORDER
  4. METHOTREXATE [Concomitant]
     Indication: ILL-DEFINED DISORDER
     Route: 048
  5. SIMPONI [Suspect]
     Indication: ILL-DEFINED DISORDER
     Route: 058
     Dates: start: 20111019, end: 20111116

REACTIONS (1)
  - PNEUMONIA FUNGAL [None]
